FAERS Safety Report 4690187-8 (Version None)
Quarter: 2005Q2

REPORT INFORMATION
  Report Type: 
  Country: None (occurrence: None)
  Receive Date: 20050613
  Receipt Date: 20050531
  Transmission Date: 20051028
  Serious: Yes (Life-Threatening, Other)
  Sender: FDA-Public Use
  Company Number: 230015M05GBR

PATIENT
  Age: 42 Year
  Sex: Female

DRUGS (5)
  1. REBIF [Suspect]
     Dosage: 44 MCG, 3 NI 1 WEEKS, SUBCUTANEOUS
     Route: 058
     Dates: start: 20040511, end: 20050103
  2. ZOPICLONE [Concomitant]
  3. TOLTERIDONE [Concomitant]
  4. DEXAMETHASONE [Concomitant]
  5. CODEINE PHOSPHATE [Concomitant]

REACTIONS (2)
  - HEPATIC NEOPLASM MALIGNANT [None]
  - LUNG NEOPLASM MALIGNANT [None]
